FAERS Safety Report 20129275 (Version 1)
Quarter: 2021Q4

REPORT INFORMATION
  Report Type: Spontaneous
  Country: AU (occurrence: AU)
  Receive Date: 20211130
  Receipt Date: 20211130
  Transmission Date: 20220304
  Serious: Yes (Other)
  Sender: FDA-Public Use
  Company Number: AU-MYLANLABS-2021M1081505

PATIENT
  Age: 29 Year
  Sex: Female

DRUGS (16)
  1. CLOZARIL [Suspect]
     Active Substance: CLOZAPINE
     Indication: Schizophrenia
     Dosage: UNK
     Route: 048
     Dates: start: 20170217, end: 2018
  2. CLOZARIL [Suspect]
     Active Substance: CLOZAPINE
     Dosage: 700 MILLIGRAM, QD
     Route: 048
  3. DIAZEPAM [Suspect]
     Active Substance: DIAZEPAM
     Indication: Dyspnoea
     Dosage: UNK
  4. DIAZEPAM [Suspect]
     Active Substance: DIAZEPAM
     Indication: Tachycardia
  5. AMISULPRIDE [Suspect]
     Active Substance: AMISULPRIDE
     Indication: Dyspnoea
     Dosage: UNK
  6. AMISULPRIDE [Suspect]
     Active Substance: AMISULPRIDE
     Indication: Tachycardia
  7. MIRTAZAPINE [Suspect]
     Active Substance: MIRTAZAPINE
     Indication: Dyspnoea
     Dosage: UNK
  8. MIRTAZAPINE [Suspect]
     Active Substance: MIRTAZAPINE
     Indication: Tachycardia
  9. VALPROIC ACID [Suspect]
     Active Substance: VALPROIC ACID
     Indication: Dyspnoea
     Dosage: UNK
  10. VALPROIC ACID [Suspect]
     Active Substance: VALPROIC ACID
     Indication: Tachycardia
  11. METFORMIN [Suspect]
     Active Substance: METFORMIN HYDROCHLORIDE
     Indication: Dyspnoea
     Dosage: UNK
  12. METFORMIN [Suspect]
     Active Substance: METFORMIN HYDROCHLORIDE
     Indication: Tachycardia
  13. FUROSEMIDE [Suspect]
     Active Substance: FUROSEMIDE
     Indication: Dyspnoea
     Dosage: UNK
  14. FUROSEMIDE [Suspect]
     Active Substance: FUROSEMIDE
     Indication: Tachycardia
  15. TOPIRAMATE [Suspect]
     Active Substance: TOPIRAMATE
     Indication: Dyspnoea
     Dosage: UNK
  16. TOPIRAMATE [Suspect]
     Active Substance: TOPIRAMATE
     Indication: Tachycardia

REACTIONS (21)
  - Myocarditis [Recovered/Resolved]
  - Sinus tachycardia [Unknown]
  - Blood phosphorus increased [Unknown]
  - Aspartate aminotransferase decreased [Not Recovered/Not Resolved]
  - C-reactive protein increased [Unknown]
  - Troponin increased [Unknown]
  - Blood alkaline phosphatase increased [Not Recovered/Not Resolved]
  - Antipsychotic drug level decreased [Recovered/Resolved]
  - Blood bilirubin decreased [Not Recovered/Not Resolved]
  - Blood cholesterol increased [Recovered/Resolved]
  - Blood glucose increased [Recovering/Resolving]
  - Blood prolactin increased [Not Recovered/Not Resolved]
  - Haematocrit decreased [Unknown]
  - Haemoglobin decreased [Not Recovered/Not Resolved]
  - Mean cell haemoglobin decreased [Not Recovered/Not Resolved]
  - Mean cell haemoglobin concentration decreased [Not Recovered/Not Resolved]
  - Mean cell volume decreased [Not Recovered/Not Resolved]
  - Red cell distribution width increased [Not Recovered/Not Resolved]
  - Serum ferritin decreased [Unknown]
  - Thyroxine free decreased [Unknown]
  - Transferrin saturation decreased [Unknown]

NARRATIVE: CASE EVENT DATE: 20170722
